FAERS Safety Report 5837590-8 (Version None)
Quarter: 2008Q3

REPORT INFORMATION
  Report Type: 
  Country: None (occurrence: None)
  Receive Date: 20080807
  Receipt Date: 20080728
  Transmission Date: 20090109
  Serious: Yes (Life-Threatening, Hospitalization, Other)
  Sender: FDA-Public Use
  Company Number: CH-ABBOTT-08P-151-0467871-00

PATIENT
  Age: 19 Year
  Sex: Male

DRUGS (3)
  1. DEPAKENE [Suspect]
     Indication: GRAND MAL CONVULSION
     Route: 048
     Dates: start: 20040101
  2. MULTI-VITAMINS [Concomitant]
     Indication: DRUG USE FOR UNKNOWN INDICATION
     Route: 048
  3. LORAZEPAM [Concomitant]
     Indication: AGITATION
     Route: 042
     Dates: start: 20080601, end: 20080601

REACTIONS (14)
  - AGITATION [None]
  - AMNESIA [None]
  - COMA [None]
  - CONFUSIONAL STATE [None]
  - DIABETES INSIPIDUS [None]
  - HYPERTHERMIA [None]
  - HYPOTHERMIA [None]
  - LIVER INJURY [None]
  - PANCREATITIS [None]
  - PANCYTOPENIA [None]
  - PRESYNCOPE [None]
  - RENAL FAILURE ACUTE [None]
  - RESPIRATORY DISTRESS [None]
  - VOMITING [None]
